FAERS Safety Report 22178244 (Version 1)
Quarter: 2023Q2

REPORT INFORMATION
  Report Type: Spontaneous
  Country: HU (occurrence: HU)
  Receive Date: 20230405
  Receipt Date: 20230405
  Transmission Date: 20230721
  Serious: Yes (Hospitalization, Other)
  Sender: FDA-Public Use
  Company Number: HU-002147023-NVSC2023HU069168

PATIENT

DRUGS (4)
  1. RUXOLITINIB [Suspect]
     Active Substance: RUXOLITINIB
     Indication: Primary myelofibrosis
     Dosage: 10 MG, BID (2X)
     Route: 065
     Dates: start: 201802
  2. RUXOLITINIB [Suspect]
     Active Substance: RUXOLITINIB
     Dosage: 10 MG, (DAILY)
     Route: 065
  3. VALSARTAN [Concomitant]
     Active Substance: VALSARTAN
     Indication: Product used for unknown indication
     Dosage: UNK
     Route: 065
  4. ALLOPURINOL [Concomitant]
     Active Substance: ALLOPURINOL
     Indication: Product used for unknown indication
     Dosage: UNK
     Route: 065

REACTIONS (19)
  - Abdominal discomfort [Unknown]
  - Prostate cancer [Unknown]
  - Second primary malignancy [Unknown]
  - Ascites [Unknown]
  - Bone marrow failure [Unknown]
  - Blood creatinine increased [Unknown]
  - Diffuse large B-cell lymphoma [Unknown]
  - General physical health deterioration [Unknown]
  - Haemoglobin increased [Not Recovered/Not Resolved]
  - Body temperature increased [Unknown]
  - Haemangioma of spleen [Unknown]
  - Pleural effusion [Unknown]
  - Somnolence [Unknown]
  - Splenic marginal zone lymphoma [Unknown]
  - Splenomegaly [Not Recovered/Not Resolved]
  - Lymphadenopathy [Unknown]
  - Platelet count decreased [Unknown]
  - Asthenia [Unknown]
  - Weight decreased [Unknown]

NARRATIVE: CASE EVENT DATE: 20180401
